FAERS Safety Report 4700306-2 (Version None)
Quarter: 2005Q2

REPORT INFORMATION
  Report Type: 
  Country: None (occurrence: None)
  Receive Date: 20050627
  Receipt Date: 20050613
  Transmission Date: 20051028
  Serious: Yes (Other)
  Sender: FDA-Public Use
  Company Number: US-MERCK-0506USA03350

PATIENT

DRUGS (2)
  1. MEVACOR [Suspect]
  2. ZOCOR [Suspect]

REACTIONS (2)
  - CONVULSION [None]
  - NEURODEVELOPMENTAL DISORDER [None]
